FAERS Safety Report 8355741-0 (Version None)
Quarter: 2012Q2

REPORT INFORMATION
  Report Type: 
  Country: None (occurrence: None)
  Receive Date: 20120514
  Receipt Date: 20120508
  Transmission Date: 20120825
  Serious: Yes (Other)
  Sender: FDA-Public Use
  Company Number: US-PFIZER INC-2012061978

PATIENT
  Sex: Female
  Weight: 109 kg

DRUGS (2)
  1. PREMPHASE 14/14 [Suspect]
     Indication: HORMONE REPLACEMENT THERAPY
     Dosage: 0.625/5 MG, DAILY
     Route: 048
     Dates: start: 19990101, end: 20111201
  2. ESTRADIOL [Suspect]
     Dosage: UNK

REACTIONS (3)
  - HYPERSENSITIVITY [None]
  - SINUSITIS [None]
  - VERTIGO [None]
